FAERS Safety Report 7760087-5 (Version None)
Quarter: 2011Q3

REPORT INFORMATION
  Report Type: 
  Country: None (occurrence: None)
  Receive Date: 20110919
  Receipt Date: 20110909
  Transmission Date: 20111222
  Serious: Yes (Disabling)
  Sender: FDA-Public Use
  Company Number: ZA-UCBSA-041277

PATIENT
  Age: 55 Year
  Sex: Female

DRUGS (2)
  1. LAMICTAL [Suspect]
     Indication: BIPOLAR DISORDER
     Dates: start: 20080101
  2. KEPPRA [Suspect]
     Dates: start: 20080101

REACTIONS (2)
  - MUSCLE ATROPHY [None]
  - WEIGHT DECREASED [None]
